FAERS Safety Report 5942035-3 (Version None)
Quarter: 2008Q4

REPORT INFORMATION
  Report Type: 
  Country: None (occurrence: None)
  Receive Date: 20081105
  Receipt Date: 20081030
  Transmission Date: 20090506
  Serious: Yes (Hospitalization, Congenital Anomaly)
  Sender: FDA-Public Use
  Company Number: A0687281A

PATIENT
  Sex: Male
  Weight: 2.1 kg

DRUGS (3)
  1. PAXIL [Suspect]
     Indication: DEPRESSION
     Dosage: 20MG PER DAY
     Dates: start: 19990601, end: 20020601
  2. VITAMIN TAB [Concomitant]
  3. ALBUTEROL [Concomitant]

REACTIONS (20)
  - DIAPHRAGMATIC HERNIA [None]
  - DRUG EXPOSURE DURING PREGNANCY [None]
  - EATING DISORDER [None]
  - EXOMPHALOS [None]
  - FAILURE TO THRIVE [None]
  - FOETAL GROWTH RETARDATION [None]
  - GROWTH RETARDATION [None]
  - IMPAIRED GASTRIC EMPTYING [None]
  - KYPHOSCOLIOSIS [None]
  - LIVER DISORDER [None]
  - LUNG DISORDER [None]
  - MALNUTRITION [None]
  - PREMATURE BABY [None]
  - PULMONARY HYPERTENSION [None]
  - PULMONARY HYPOPLASIA [None]
  - RESPIRATORY DISTRESS [None]
  - RETINAL DISORDER [None]
  - TACHYPNOEA [None]
  - VENTRICULAR SEPTAL DEFECT [None]
  - WEIGHT GAIN POOR [None]
